FAERS Safety Report 10370639 (Version 1)
Quarter: 2014Q1

REPORT INFORMATION
  Report Type: Spontaneous
  Country: US (occurrence: None)
  Receive Date: 20140306
  Receipt Date: 20140306
  Transmission Date: 20141002
  Serious: Yes (Other)
  Sender: FDA-Public Use
  Company Number: 163-21880-13093907

PATIENT
  Age: 72 Year
  Sex: Female

DRUGS (3)
  1. REVLIMID [Suspect]
     Indication: PLASMA CELL MYELOMA
     Route: 048
     Dates: start: 201204
  2. LORATADINE [Concomitant]
  3. BENADRYL (DIPHENHYDRAMINE) [Concomitant]

REACTIONS (5)
  - Swelling face [None]
  - Weight increased [None]
  - Rash macular [None]
  - Dyspnoea [None]
  - Constipation [None]
